FAERS Safety Report 8499201-5 (Version None)
Quarter: 2012Q2

REPORT INFORMATION
  Report Type: 
  Country: None (occurrence: None)
  Receive Date: 20120405
  Receipt Date: 20100624
  Transmission Date: 20120825
  Serious: Yes (Hospitalization)
  Sender: FDA-Public Use
  Company Number: PHHY2010US42209

PATIENT
  Sex: Female
  Weight: 50.8 kg

DRUGS (1)
  1. RECLAST [Suspect]
     Dosage: INFUSION

REACTIONS (3)
  - CHILLS [None]
  - PYREXIA [None]
  - PAIN [None]
